FAERS Safety Report 17950648 (Version 1)
Quarter: 2020Q2

REPORT INFORMATION
  Report Type: Spontaneous
  Country: CA (occurrence: CA)
  Receive Date: 20200626
  Receipt Date: 20200626
  Transmission Date: 20200714
  Serious: Yes (Other)
  Sender: FDA-Public Use
  Company Number: CA-TEVA-2020-CA-1792907

PATIENT
  Sex: Female

DRUGS (1)
  1. ACT OLMESARTAN HCT [Suspect]
     Active Substance: HYDROCHLOROTHIAZIDE\OLMESARTAN MEDOXOMIL
     Indication: HYPERTENSION

REACTIONS (3)
  - Dizziness [Recovered/Resolved]
  - Palpitations [Recovered/Resolved]
  - Pruritus [Recovered/Resolved]
